FAERS Safety Report 9281786 (Version 2)
Quarter: 2013Q4

REPORT INFORMATION
  Report Type: Spontaneous
  Country: US (occurrence: US)
  Receive Date: 20130510
  Receipt Date: 20131011
  Transmission Date: 20140711
  Serious: Yes (Hospitalization)
  Sender: FDA-Public Use
  Company Number: US-B.I. PHARMACEUTICALS,INC./RIDGEFIELD-2013-BI-13039BP

PATIENT
  Sex: Female
  Weight: 49.9 kg

DRUGS (15)
  1. PRADAXA [Suspect]
     Indication: ANTICOAGULANT THERAPY
     Dosage: 300 MG
     Route: 048
     Dates: start: 20110527, end: 20110922
  2. PRADAXA [Suspect]
     Indication: ATRIAL FIBRILLATION
  3. EPIPEN [Concomitant]
     Indication: ALLERGY TO ARTHROPOD STING
  4. SENOKOT [Concomitant]
  5. NITROGLYCERINE [Concomitant]
     Indication: CHEST PAIN
     Route: 060
  6. VITAMIN D [Concomitant]
  7. FOSAMAX [Concomitant]
     Dosage: 10 MG
     Route: 048
  8. HYDRALAZINE [Concomitant]
     Dosage: 75 MG
     Route: 048
  9. CALCIUM WITH VITAMIN D [Concomitant]
     Route: 048
  10. SPIRONOLACTONE [Concomitant]
     Dosage: 50 MG
     Route: 048
  11. HYDROCHLOROTHIAZIDE [Concomitant]
     Dosage: 25 MG
     Route: 048
  12. ASPIRIN [Concomitant]
     Dosage: 81 MG
     Route: 048
  13. COREG [Concomitant]
     Dosage: 25 MG
     Route: 048
  14. OCUVITE [Concomitant]
     Route: 048
  15. LUTEIN [Concomitant]
     Dosage: 20 MG
     Route: 048

REACTIONS (3)
  - Gastrointestinal haemorrhage [Unknown]
  - Ulcer haemorrhage [Unknown]
  - Anaemia [Unknown]
